FAERS Safety Report 25445322 (Version 1)
Quarter: 2025Q2

REPORT INFORMATION
  Report Type: Spontaneous
  Country: US (occurrence: None)
  Receive Date: 20250616
  Receipt Date: 20250616
  Transmission Date: 20250716
  Serious: Yes (Hospitalization)
  Sender: FDA-CTU
  Company Number: None

PATIENT
  Age: 75 Year
  Sex: Male

DRUGS (11)
  1. ETRAVIRINE [Suspect]
     Active Substance: ETRAVIRINE
     Indication: HIV infection
     Dosage: FREQUENCY : TWICE A DAY;?
     Route: 048
     Dates: start: 20210828
  2. DARUNAVIR [Suspect]
     Active Substance: DARUNAVIR
  3. GABAPENTIN [Suspect]
     Active Substance: GABAPENTIN
  4. LEVOFLOXACIN [Suspect]
     Active Substance: LEVOFLOXACIN
  5. EZETIMIBE [Suspect]
     Active Substance: EZETIMIBE
  6. CLOPIDOGREL [Suspect]
     Active Substance: CLOPIDOGREL BISULFATE
  7. ALPRAZOLAM [Concomitant]
     Active Substance: ALPRAZOLAM
  8. ALBUTEROL [Suspect]
     Active Substance: ALBUTEROL
  9. VITAMIN D2 [Concomitant]
     Active Substance: ERGOCALCIFEROL
  10. DESCOVY [Suspect]
     Active Substance: EMTRICITABINE\TENOFOVIR ALAFENAMIDE FUMARATE
  11. PANTOPRAZOLE [Concomitant]
     Active Substance: PANTOPRAZOLE

REACTIONS (3)
  - Weight decreased [None]
  - Asthenia [None]
  - HIV wasting syndrome [None]
